FAERS Safety Report 9144086 (Version 2)
Quarter: 2013Q2

REPORT INFORMATION
  Report Type: Spontaneous
  Country: CO (occurrence: CO)
  Receive Date: 20130306
  Receipt Date: 20130416
  Transmission Date: 20140414
  Serious: Yes (Hospitalization, Other)
  Sender: FDA-Public Use
  Company Number: CO-VERTEX PHARMACEUTICALS INC.-2013-002687

PATIENT
  Age: 54 Year
  Sex: Male
  Weight: 56 kg

DRUGS (6)
  1. INCIVO [Suspect]
     Indication: HEPATITIS C
     Dosage: 375 MG (TWICE), TID
     Route: 048
     Dates: start: 20130118
  2. INCIVO [Suspect]
     Dosage: 750 MG, UNK
     Route: 048
     Dates: start: 20130202
  3. INTERFERON [Concomitant]
     Indication: HEPATITIS C
     Dosage: 100 ?G, UNK
     Route: 065
  4. INTERFERON [Concomitant]
     Dosage: 180 ?G, UNK
     Route: 058
     Dates: start: 20130202
  5. RIBAVIRIN [Concomitant]
     Indication: HEPATITIS C
     Dosage: 200 MG, UNK
     Route: 048
  6. RIBAVIRIN [Concomitant]
     Dosage: 1000 MG, BID
     Route: 048
     Dates: start: 20130202

REACTIONS (6)
  - Viral infection [Not Recovered/Not Resolved]
  - Rash [Unknown]
  - Pyrexia [Unknown]
  - Abdominal pain [Unknown]
  - Pain [Not Recovered/Not Resolved]
  - Nausea [Not Recovered/Not Resolved]
